FAERS Safety Report 7359663-3 (Version None)
Quarter: 2011Q1

REPORT INFORMATION
  Report Type: 
  Country: None (occurrence: None)
  Receive Date: 20110317
  Receipt Date: 20110315
  Transmission Date: 20110831
  Serious: Yes (Other)
  Sender: FDA-Public Use
  Company Number: US-PFIZER INC-2011043833

PATIENT
  Sex: Female
  Weight: 76.2 kg

DRUGS (1)
  1. CHANTIX [Suspect]
     Indication: SMOKING CESSATION THERAPY
     Dosage: 1 MG, 2X/DAY
     Route: 048
     Dates: start: 20110201, end: 20110226

REACTIONS (6)
  - SLEEP DISORDER [None]
  - ANGER [None]
  - DEPRESSION [None]
  - AGITATION [None]
  - ANXIETY [None]
  - PANIC ATTACK [None]
